FAERS Safety Report 25086796 (Version 2)
Quarter: 2025Q2

REPORT INFORMATION
  Report Type: Spontaneous
  Country: US (occurrence: US)
  Receive Date: 20250318
  Receipt Date: 20250507
  Transmission Date: 20250716
  Serious: No
  Sender: AMGEN
  Company Number: US-AMGEN-USASP2025047137

PATIENT

DRUGS (3)
  1. PAVBLU [Suspect]
     Active Substance: AFLIBERCEPT-AYYH
     Indication: Product used for unknown indication
     Route: 065
  2. PAVBLU [Suspect]
     Active Substance: AFLIBERCEPT-AYYH
     Route: 065
  3. PAVBLU [Suspect]
     Active Substance: AFLIBERCEPT-AYYH
     Route: 065

REACTIONS (2)
  - Device physical property issue [Unknown]
  - Drug dose omission by device [Unknown]

NARRATIVE: CASE EVENT DATE: 20250127
